FAERS Safety Report 17203701 (Version 1)
Quarter: 2019Q4

REPORT INFORMATION
  Report Type: Spontaneous
  Country: SE (occurrence: SE)
  Receive Date: 20191226
  Receipt Date: 20191226
  Transmission Date: 20200122
  Serious: Yes (Hospitalization)
  Sender: FDA-Public Use
  Company Number: SE-MYLANLABS-2019M1127274

PATIENT
  Sex: Female

DRUGS (2)
  1. LERGIGAN (PROMETHAZINE) [Suspect]
     Active Substance: PROMETHAZINE HYDROCHLORIDE
     Indication: PRODUCT USED FOR UNKNOWN INDICATION
     Dosage: 1250 MILLIGRAM
     Route: 048
     Dates: start: 20190120, end: 20190120
  2. HYDROXYZINE [Suspect]
     Active Substance: HYDROXYZINE HYDROCHLORIDE
     Indication: PRODUCT USED FOR UNKNOWN INDICATION
     Dosage: OKLART ANTAL
     Route: 048
     Dates: start: 20190120, end: 20190120

REACTIONS (8)
  - Agitation [Unknown]
  - Tachycardia [Unknown]
  - Intentional overdose [Unknown]
  - Hallucination, visual [Unknown]
  - Intentional self-injury [Unknown]
  - Anxiety [Unknown]
  - Loss of consciousness [Unknown]
  - Disorientation [Unknown]

NARRATIVE: CASE EVENT DATE: 20190120
